FAERS Safety Report 9785245 (Version 1)
Quarter: 2013Q4

REPORT INFORMATION
  Report Type: Spontaneous
  Country: US (occurrence: None)
  Receive Date: 20131224
  Receipt Date: 20131224
  Transmission Date: 20140711
  Serious: Yes (Hospitalization, Other)
  Sender: FDA-Public Use
  Company Number: US-014029

PATIENT
  Sex: Female

DRUGS (2)
  1. MINIRIN [Suspect]
     Indication: DIABETES INSIPIDUS
     Dosage: NASAL (TO NOT CONTINUING)?
  2. MINIRIN [Suspect]
     Indication: DIABETES INSIPIDUS
     Dosage: ORAL (TO NOT CONTINUING)
     Route: 048

REACTIONS (3)
  - Nasal ulcer [None]
  - Scar [None]
  - Drug ineffective [None]
